FAERS Safety Report 9464301 (Version 2)
Quarter: 2013Q3

REPORT INFORMATION
  Report Type: Spontaneous
  Country: US (occurrence: US)
  Receive Date: 20130819
  Receipt Date: 20130906
  Transmission Date: 20140515
  Serious: Yes (Death, Life-Threatening, Hospitalization)
  Sender: FDA-Public Use
  Company Number: US-ROXANE LABORATORIES, INC.-2013-RO-01385RO

PATIENT
  Age: 79 Year
  Sex: Male
  Weight: 69 kg

DRUGS (23)
  1. DEXAMETHASONE [Suspect]
     Indication: PLASMA CELL MYELOMA
     Dosage: 20 MG
     Route: 048
     Dates: start: 20130722
  2. DEXAMETHASONE [Suspect]
     Dosage: 10 MG
     Route: 048
     Dates: start: 20130723, end: 20130726
  3. NPI-0052 [Suspect]
     Indication: PLASMA CELL MYELOMA
     Route: 042
     Dates: start: 20130722
  4. NPI-0052 [Suspect]
     Route: 042
     Dates: start: 20130725, end: 20130725
  5. ACYCLOVIR [Concomitant]
     Dosage: 400 MG
     Route: 048
  6. ASPIRIN [Concomitant]
     Dosage: 81 MG
     Route: 048
  7. CARVEDILOL [Concomitant]
     Dosage: 50 MG
     Route: 048
  8. CITALOPRAM [Concomitant]
     Dosage: 40 MG
     Route: 048
  9. COMPAZINE [Concomitant]
     Route: 048
  10. COUMADIN [Concomitant]
     Indication: AORTIC VALVE REPLACEMENT
     Dosage: 5 MG
     Route: 048
  11. ESOMEPRAZOLE [Concomitant]
     Dosage: 20 MG
     Route: 048
  12. FERROUS SULFATE [Concomitant]
     Dosage: 65 MG
     Route: 048
  13. FINASTERIDE [Concomitant]
     Indication: BENIGN PROSTATIC HYPERPLASIA
     Dosage: 5 MG
     Route: 048
  14. GABAPENTIN [Concomitant]
     Route: 048
  15. LIPITOR [Concomitant]
     Dosage: 80 MG
     Route: 048
  16. ISOSORBIDE MONONITRATE [Concomitant]
     Dosage: 60 MG
     Route: 048
  17. METFORMIN [Concomitant]
     Dosage: 1000 MG
     Route: 048
  18. OXYCODONE [Concomitant]
     Route: 048
  19. SENNATAB [Concomitant]
     Dosage: 17.2 MG
     Route: 048
  20. TRIAMTERENE/HYDROCHLOROTHIAZIDE [Concomitant]
     Route: 048
  21. TYLENOL [Concomitant]
     Indication: PAIN
     Route: 048
  22. OXYCONTIN [Concomitant]
     Dosage: 20 MG
     Route: 048
  23. VITAMIN B COMPLEX [Concomitant]
     Route: 048

REACTIONS (3)
  - Endocarditis staphylococcal [Fatal]
  - Embolic stroke [Fatal]
  - Septic embolus [Fatal]
